FAERS Safety Report 8779205 (Version 1)
Quarter: 2012Q4

REPORT INFORMATION
  Report Type: 
  Country: US (occurrence: US)
  Receive Date: 20120912
  Receipt Date: 20120912
  Transmission Date: 20130627
  Serious: No
  Sender: FDA-Public Use
  Company Number: US-BIOGENIDEC-2012BI035384

PATIENT
  Sex: Male

DRUGS (17)
  1. AVONEX [Suspect]
     Indication: MULTIPLE SCLEROSIS
     Route: 030
     Dates: start: 20120607, end: 20120607
  2. AVONEX [Suspect]
     Indication: MULTIPLE SCLEROSIS
     Route: 030
     Dates: start: 20120614, end: 20120614
  3. AVONEX [Suspect]
     Indication: MULTIPLE SCLEROSIS
     Route: 030
     Dates: start: 20120621, end: 20120621
  4. AVONEX [Suspect]
     Indication: MULTIPLE SCLEROSIS
     Route: 030
     Dates: start: 20120628, end: 201207
  5. AVONEX [Suspect]
     Indication: MULTIPLE SCLEROSIS
     Route: 030
     Dates: start: 201207
  6. TYSABRI [Concomitant]
     Indication: MULTIPLE SCLEROSIS
     Route: 042
     Dates: start: 20110124, end: 20120503
  7. BETA SERON [Concomitant]
     Indication: MULTIPLE SCLEROSIS
     Dates: start: 20070601, end: 2010
  8. TRAMADOL [Concomitant]
     Indication: PAIN
  9. NEURONTIN [Concomitant]
     Indication: PAIN
  10. FLOMAX [Concomitant]
     Indication: DYSURIA
  11. ADVIL [Concomitant]
     Indication: PAIN
  12. NARCOTIC PAIN MEDICATION [Concomitant]
     Indication: PAIN
  13. CYCLOBENZAPRINE [Concomitant]
     Indication: MUSCLE SPASMS
  14. LUNESTA [Concomitant]
     Indication: INSOMNIA
  15. XANAX [Concomitant]
     Indication: PANIC ATTACK
  16. XANAX [Concomitant]
     Indication: BURNING SENSATION
  17. MAXALT [Concomitant]
     Indication: MIGRAINE

REACTIONS (11)
  - Memory impairment [Not Recovered/Not Resolved]
  - Lymph gland infection [Unknown]
  - Local swelling [Not Recovered/Not Resolved]
  - Constipation [Not Recovered/Not Resolved]
  - Weight decreased [Not Recovered/Not Resolved]
  - Muscle atrophy [Not Recovered/Not Resolved]
  - Sinusitis [Unknown]
  - Migraine [Unknown]
  - Pain [Not Recovered/Not Resolved]
  - Decreased appetite [Not Recovered/Not Resolved]
  - Muscle spasms [Not Recovered/Not Resolved]
